FAERS Safety Report 13747606 (Version 1)
Quarter: 2017Q3

REPORT INFORMATION
  Report Type: Report from Study
  Country: US (occurrence: US)
  Receive Date: 20170712
  Receipt Date: 20170712
  Transmission Date: 20171127
  Serious: Yes (Hospitalization)
  Sender: FDA-Public Use
  Company Number: US-VIFOR (INTERNATIONAL) INC.-VIT-2017-07463

PATIENT
  Sex: Female

DRUGS (21)
  1. ERGOCALCIFEROL. [Concomitant]
     Active Substance: ERGOCALCIFEROL
  2. LEVOTHYROXINE SODIUM. [Concomitant]
     Active Substance: LEVOTHYROXINE SODIUM
  3. ZETIA [Concomitant]
     Active Substance: EZETIMIBE
  4. LORATADINE. [Concomitant]
     Active Substance: LORATADINE
  5. ISOSORBIDE MONONITRATE. [Concomitant]
     Active Substance: ISOSORBIDE MONONITRATE
  6. PIOGLITAZONE. [Concomitant]
     Active Substance: PIOGLITAZONE
  7. ULORIC [Concomitant]
     Active Substance: FEBUXOSTAT
  8. LIVALO [Concomitant]
     Active Substance: PITAVASTATIN CALCIUM
  9. ELIQUIS [Concomitant]
     Active Substance: APIXABAN
  10. VITAMINS NOS [Concomitant]
     Active Substance: VITAMINS
  11. COQ10 [Concomitant]
     Active Substance: UBIDECARENONE
  12. LANTUS [Concomitant]
     Active Substance: INSULIN GLARGINE
  13. FENOFIBRATE. [Concomitant]
     Active Substance: FENOFIBRATE
  14. IRON [Concomitant]
     Active Substance: IRON
  15. ZANTAC [Concomitant]
     Active Substance: RANITIDINE HYDROCHLORIDE
  16. ACETYLSALICYLIC ACID [Concomitant]
     Active Substance: ASPIRIN
  17. RANEXA [Concomitant]
     Active Substance: RANOLAZINE
  18. GLYCERYL TRINITRATE [Concomitant]
     Active Substance: NITROGLYCERIN
  19. BYSTOLIC [Concomitant]
     Active Substance: NEBIVOLOL HYDROCHLORIDE
  20. VELTASSA [Suspect]
     Active Substance: PATIROMER
     Indication: HYPERKALAEMIA
     Route: 048
     Dates: start: 20170221
  21. LYRICA [Concomitant]
     Active Substance: PREGABALIN

REACTIONS (1)
  - Hospitalisation [Not Recovered/Not Resolved]

NARRATIVE: CASE EVENT DATE: 2017
